FAERS Safety Report 12988658 (Version 1)
Quarter: 2016Q4

REPORT INFORMATION
  Report Type: Report from Study
  Country: None (occurrence: GB)
  Receive Date: 20161130
  Receipt Date: 20161130
  Transmission Date: 20170207
  Serious: Yes (Death, Hospitalization)
  Sender: FDA-Public Use
  Company Number: GB-ABBVIE-16P-167-1793767-00

PATIENT
  Age: 68 Year
  Sex: Male

DRUGS (4)
  1. VENETOCLAX [Suspect]
     Active Substance: VENETOCLAX
     Indication: CHRONIC LYMPHOCYTIC LEUKAEMIA REFRACTORY
     Dosage: REACHED FULL DOSE (400 MG ) ON 07 JUN 16 BUT NOT TOLERATE, DOWN TO 300 MG ON 14 JUN16
     Route: 048
     Dates: start: 20160509, end: 20160607
  2. PREDNISOLONE. [Concomitant]
     Active Substance: PREDNISOLONE
     Indication: PRODUCT USED FOR UNKNOWN INDICATION
  3. VENETOCLAX [Suspect]
     Active Substance: VENETOCLAX
     Route: 048
     Dates: start: 20160614
  4. VENETOCLAX [Suspect]
     Active Substance: VENETOCLAX
     Route: 048
     Dates: start: 20160607, end: 20160614

REACTIONS (9)
  - Rib fracture [Unknown]
  - Acute myeloid leukaemia [Fatal]
  - Myelodysplastic syndrome [Unknown]
  - Pneumonia [Unknown]
  - Fatigue [Unknown]
  - Campylobacter gastroenteritis [Recovered/Resolved]
  - Herpes zoster [Recovered/Resolved]
  - Immunosuppression [Unknown]
  - Drug intolerance [Unknown]

NARRATIVE: CASE EVENT DATE: 20160629
